FAERS Safety Report 23230037 (Version 1)
Quarter: 2023Q4

REPORT INFORMATION
  Report Type: Spontaneous
  Country: US (occurrence: US)
  Receive Date: 20231127
  Receipt Date: 20231127
  Transmission Date: 20240110
  Serious: Yes (Hospitalization)
  Sender: FDA-Public Use
  Company Number: US-drreddys-LIT/USA/23/0187020

PATIENT
  Age: 6 Year
  Sex: Male

DRUGS (2)
  1. MERCAPTOPURINE [Suspect]
     Active Substance: MERCAPTOPURINE
     Indication: Acute lymphocytic leukaemia
  2. MERCAPTOPURINE [Suspect]
     Active Substance: MERCAPTOPURINE
     Dosage: DOSE OF MERCAPTOPURINE WAS INCREASED TO 100 MG/DAY

REACTIONS (2)
  - Hepatotoxicity [Recovered/Resolved]
  - Intentional overdose [Unknown]
